FAERS Safety Report 23600260 (Version 1)
Quarter: 2024Q1

REPORT INFORMATION
  Report Type: Other
  Country: US (occurrence: US)
  Receive Date: 20240306
  Receipt Date: 20240306
  Transmission Date: 20240409
  Serious: No
  Sender: FDA-Public Use
  Company Number: US-SIGA Technologies, Inc.-2154076

PATIENT

DRUGS (1)
  1. TPOXX [Suspect]
     Active Substance: TECOVIRIMAT

REACTIONS (8)
  - Abdominal discomfort [Unknown]
  - Steatorrhoea [Unknown]
  - Nausea [Unknown]
  - Irritability [Unknown]
  - Headache [Unknown]
  - Somnolence [Unknown]
  - Diarrhoea [Unknown]
  - Back pain [Unknown]
